FAERS Safety Report 9614078 (Version 2)
Quarter: 2013Q4

REPORT INFORMATION
  Report Type: Spontaneous
  Country: GR (occurrence: GR)
  Receive Date: 20131011
  Receipt Date: 20131011
  Transmission Date: 20140711
  Serious: Yes (Other)
  Sender: FDA-Public Use
  Company Number: GR-AMGEN-GRCSP2013067276

PATIENT
  Age: 65 Year
  Sex: Female

DRUGS (4)
  1. VECTIBIX [Suspect]
     Indication: COLON CANCER
     Dosage: 6 MG/KG, UNK
     Route: 065
  2. FLUOROURACIL [Concomitant]
     Indication: COLON CANCER
     Dosage: UNK
  3. IRINOTECAN [Concomitant]
     Indication: COLON CANCER
     Dosage: UNK
  4. LEUCOVORIN                         /00566701/ [Concomitant]
     Indication: COLON CANCER
     Dosage: UNK

REACTIONS (3)
  - Disease progression [Unknown]
  - Hypocalcaemia [Recovered/Resolved]
  - Hypomagnesaemia [Recovered/Resolved]
